FAERS Safety Report 12271728 (Version 1)
Quarter: 2016Q2

REPORT INFORMATION
  Report Type: Spontaneous
  Country: US (occurrence: US)
  Receive Date: 20160415
  Receipt Date: 20160415
  Transmission Date: 20160815
  Serious: Yes (Hospitalization)
  Sender: FDA-Public Use
  Company Number: US-009507513-1604USA006049

PATIENT
  Sex: Female
  Weight: 81.65 kg

DRUGS (6)
  1. ASPIRIN. [Concomitant]
     Active Substance: ASPIRIN
     Dosage: UNK
     Dates: start: 2000
  2. CRESTOR [Suspect]
     Active Substance: ROSUVASTATIN CALCIUM
     Indication: BLOOD CHOLESTEROL ABNORMAL
     Dosage: 10 MG, QD
     Route: 048
     Dates: start: 2000, end: 2001
  3. MULTIVIT [Concomitant]
     Active Substance: VITAMINS
     Dosage: UNK
     Dates: start: 1948
  4. CALCIUM (UNSPECIFIED) [Concomitant]
     Active Substance: CALCIUM
     Dosage: STRENGTH: 500
     Dates: start: 1995
  5. ATORVASTATIN CALCIUM. [Suspect]
     Active Substance: ATORVASTATIN CALCIUM
     Indication: BLOOD CHOLESTEROL ABNORMAL
     Dosage: 10 MG, QD
     Dates: start: 2000, end: 2001
  6. ZOCOR [Suspect]
     Active Substance: SIMVASTATIN
     Indication: BLOOD CHOLESTEROL ABNORMAL
     Dosage: 10 MG, QD
     Route: 048
     Dates: start: 2000, end: 2001

REACTIONS (5)
  - Malaise [Recovered/Resolved]
  - Headache [Recovered/Resolved]
  - Hepatic enzyme abnormal [Recovered/Resolved]
  - Abdominal pain lower [Recovered/Resolved]
  - Gallbladder non-functioning [Recovered/Resolved]

NARRATIVE: CASE EVENT DATE: 2000
